FAERS Safety Report 5536901-0 (Version None)
Quarter: 2007Q4

REPORT INFORMATION
  Report Type: 
  Country: None (occurrence: None)
  Receive Date: 20071207
  Receipt Date: 20071126
  Transmission Date: 20080405
  Serious: Yes (Other)
  Sender: FDA-Public Use
  Company Number: PHHO2007DE08053

PATIENT
  Age: 71 Year
  Sex: Female

DRUGS (11)
  1. ZOLEDRONIC ACID [Suspect]
     Indication: METASTASES TO BONE
     Dosage: 4 MG, ONCE A MONTH
     Route: 042
     Dates: start: 20060908, end: 20070404
  2. KEVATRIL [Concomitant]
  3. CLINDAMYCIN HCL [Suspect]
     Dates: end: 20070413
  4. CLINDAMYCIN HCL [Suspect]
     Dosage: UNK, NO TREATMENT
  5. CLINDAMYCIN HCL [Suspect]
     Route: 042
  6. TAVEGIL [Concomitant]
  7. PACLITAXEL [Concomitant]
     Indication: BREAST CANCER
  8. DEXAMETHASONE TAB [Concomitant]
  9. CALCIUM [Concomitant]
     Indication: METASTASES TO BONE
     Dosage: 500 MG, QD
     Route: 048
     Dates: start: 20060908, end: 20070404
  10. VITAMIN D [Concomitant]
     Indication: METASTASES TO BONE
     Dosage: 400-500 IU
     Route: 048
     Dates: start: 20060908, end: 20070404
  11. RANITIDINE HCL [Concomitant]

REACTIONS (8)
  - GASTROINTESTINAL PAIN [None]
  - IMPAIRED HEALING [None]
  - INFECTION [None]
  - NAUSEA [None]
  - OSTEONECROSIS [None]
  - SURGERY [None]
  - TOOTH EXTRACTION [None]
  - WOUND INFECTION [None]
